FAERS Safety Report 7652628-3 (Version None)
Quarter: 2011Q3

REPORT INFORMATION
  Report Type: 
  Country: None (occurrence: None)
  Receive Date: 20110728
  Receipt Date: 20110712
  Transmission Date: 20111222
  Serious: Yes (Hospitalization, Other)
  Sender: FDA-Public Use
  Company Number: 2011MA008736

PATIENT
  Age: 1 Day
  Sex: Male
  Weight: 2.02 kg

DRUGS (2)
  1. TRAMADOL HCL [Suspect]
     Indication: MATERNAL DRUGS AFFECTING FOETUS
     Dosage: 800 MG;QD
  2. KETOROLAC TROMETHAMINE [Concomitant]

REACTIONS (6)
  - MYOCLONUS [None]
  - MATERNAL DRUGS AFFECTING FOETUS [None]
  - IRRITABILITY [None]
  - PREMATURE BABY [None]
  - AGITATION NEONATAL [None]
  - DRUG WITHDRAWAL SYNDROME NEONATAL [None]
